FAERS Safety Report 25229463 (Version 1)
Quarter: 2025Q2

REPORT INFORMATION
  Report Type: Spontaneous
  Country: BR (occurrence: BR)
  Receive Date: 20250423
  Receipt Date: 20250423
  Transmission Date: 20250717
  Serious: Yes (Other)
  Sender: RANBAXY
  Company Number: BR-SUN PHARMACEUTICAL INDUSTRIES LTD-2025R1-504799

PATIENT
  Sex: Male
  Weight: 1.8 kg

DRUGS (2)
  1. ASPIRIN [Suspect]
     Active Substance: ASPIRIN
     Indication: Hypofibrinogenaemia
     Route: 064
  2. HEPARIN [Suspect]
     Active Substance: HEPARIN SODIUM
     Indication: Product used for unknown indication
     Dosage: 10.000UI TWICE A DAY
     Route: 064

REACTIONS (3)
  - Foetal exposure during pregnancy [Unknown]
  - Premature baby [Unknown]
  - Low birth weight baby [Unknown]
